FAERS Safety Report 26170250 (Version 1)
Quarter: 2025Q4

REPORT INFORMATION
  Report Type: Spontaneous
  Country: JP (occurrence: US)
  Receive Date: 20251217
  Receipt Date: 20251217
  Transmission Date: 20260117
  Serious: No
  Sender: ARDELYX
  Company Number: JP-ARDELYX-2025ARDX008310

PATIENT

DRUGS (1)
  1. TENAPANOR HYDROCHLORIDE [Suspect]
     Active Substance: TENAPANOR HYDROCHLORIDE
     Indication: Hyperphosphataemia
     Dosage: 5 MG,  AS PER THE DOSAGE AND ADMINISTRATION
     Route: 048

REACTIONS (1)
  - Diarrhoea [Unknown]
